FAERS Safety Report 8594761-8 (Version None)
Quarter: 2012Q3

REPORT INFORMATION
  Report Type: 
  Country: None (occurrence: None)
  Receive Date: 20120801
  Receipt Date: 20120717
  Transmission Date: 20120928
  Serious: Yes (Hospitalization)
  Sender: FDA-Public Use
  Company Number: FK201202054

PATIENT
  Age: 40 Year
  Sex: Male

DRUGS (1)
  1. GEMCITABINE [Suspect]
     Indication: PANCREATIC CARCINOMA METASTATIC

REACTIONS (3)
  - TUMOUR LYSIS SYNDROME [None]
  - TACHYCARDIA [None]
  - HAEMODIALYSIS [None]
